FAERS Safety Report 17577630 (Version 1)
Quarter: 2020Q1

REPORT INFORMATION
  Report Type: Spontaneous
  Country: US (occurrence: US)
  Receive Date: 20200324
  Receipt Date: 20200324
  Transmission Date: 20200409
  Serious: Yes (Hospitalization)
  Sender: FDA-Public Use
  Company Number: US-THE PROACTIV LLC-2081929

PATIENT
  Age: 48 Year
  Sex: Female

DRUGS (3)
  1. PROACTIV REVITALIZING TONER [Suspect]
     Active Substance: COSMETICS
     Route: 061
     Dates: start: 2004, end: 2019
  2. PROACTIV SOLUTION RENEWING CLEANSER [Suspect]
     Active Substance: BENZOYL PEROXIDE
     Indication: ACNE
     Route: 061
     Dates: start: 2004, end: 2019
  3. PROACTIV SOLUTION REPAIRING TREATMENT [Suspect]
     Active Substance: BENZOYL PEROXIDE
     Route: 061
     Dates: start: 2004, end: 2019

REACTIONS (7)
  - Skin burning sensation [Recovered/Resolved]
  - Colorectal cancer [Recovered/Resolved]
  - Intestinal obstruction [Recovered/Resolved]
  - Renal failure [Recovered/Resolved]
  - Seizure [Recovered/Resolved]
  - Breast cancer [Recovered/Resolved]
  - Urticaria [Recovered/Resolved]

NARRATIVE: CASE EVENT DATE: 2004
